FAERS Safety Report 17360192 (Version 1)
Quarter: 2020Q1

REPORT INFORMATION
  Report Type: Report from Study
  Country: IT (occurrence: IT)
  Receive Date: 20200203
  Receipt Date: 20200203
  Transmission Date: 20200409
  Serious: Yes (Other)
  Sender: FDA-Public Use
  Company Number: IT-ACCORD-171337

PATIENT
  Age: 78 Year
  Sex: Female

DRUGS (3)
  1. CORIPREN [Suspect]
     Active Substance: ENALAPRIL MALEATE\LERCANIDIPINE HYDROCHLORIDE
     Indication: HYPERTENSION
     Dosage: STRENGTH: 20 MG / 20 MG FILM-COATED TABLETS, LAST DOSE ADMINISTERED ON 09-NOV-2019
     Route: 048
     Dates: start: 20181109
  2. RAMIPRIL. [Suspect]
     Active Substance: RAMIPRIL
     Indication: HYPERTENSION
     Dosage: LAST DOSE ADMINISTERED ON 09-NOV-2019
     Route: 048
     Dates: start: 20181109
  3. NOBISTAR [Suspect]
     Active Substance: NEBIVOLOL HYDROCHLORIDE
     Indication: HYPERTENSION
     Dosage: STRENGTH: 5 MG, LAST DOSE ADMINISTERED ON 09-NOV-2019
     Route: 048
     Dates: start: 20181109

REACTIONS (2)
  - Hypertension [Recovering/Resolving]
  - Drug ineffective [Unknown]

NARRATIVE: CASE EVENT DATE: 20191109
